FAERS Safety Report 4660145-8 (Version None)
Quarter: 2005Q2

REPORT INFORMATION
  Report Type: 
  Country: None (occurrence: None)
  Receive Date: 20050419
  Receipt Date: 20050216
  Transmission Date: 20051028
  Serious: Yes (Life-Threatening, Hospitalization, Disabling)
  Sender: FDA-Public Use
  Company Number: 20050200040

PATIENT
  Age: 46 Year
  Sex: Female
  Weight: 100 kg

DRUGS (5)
  1. HEPARIN [Suspect]
     Dates: start: 20050128, end: 20050128
  2. TNKASE [Suspect]
     Dates: start: 20050128, end: 20050128
  3. ASPIRIN [Suspect]
     Dates: start: 20050128, end: 20050128
  4. CLOPIDOGREL BISULFATE [Suspect]
     Dates: start: 20050128, end: 20050128
  5. ABCIXIMAB [Suspect]
     Dates: start: 20050128, end: 20050128

REACTIONS (1)
  - HAEMORRHAGE INTRACRANIAL [None]
